FAERS Safety Report 25374095 (Version 4)
Quarter: 2025Q3

REPORT INFORMATION
  Report Type: Spontaneous
  Country: GB (occurrence: GB)
  Receive Date: 20250529
  Receipt Date: 20250804
  Transmission Date: 20251020
  Serious: Yes (Other)
  Sender: PFIZER
  Company Number: GB-BRISTOL-MYERS SQUIBB COMPANY-2025-046996

PATIENT
  Age: 79 Year
  Sex: Male

DRUGS (25)
  1. DEXAMETHASONE SODIUM PHOSPHATE [Suspect]
     Active Substance: DEXAMETHASONE SODIUM PHOSPHATE
     Indication: Plasma cell myeloma
     Route: 065
     Dates: start: 2015
  2. DEXAMETHASONE SODIUM PHOSPHATE [Suspect]
     Active Substance: DEXAMETHASONE SODIUM PHOSPHATE
     Route: 065
     Dates: start: 2024
  3. BORTEZOMIB [Suspect]
     Active Substance: BORTEZOMIB
     Indication: Plasma cell myeloma
  4. VELCADE [Suspect]
     Active Substance: BORTEZOMIB
     Indication: Plasma cell myeloma
     Dates: start: 2015
  5. THALIDOMIDE [Suspect]
     Active Substance: THALIDOMIDE
     Indication: Plasma cell myeloma
     Route: 065
     Dates: end: 201409
  6. LENALIDOMIDE [Suspect]
     Active Substance: LENALIDOMIDE
     Indication: Plasma cell myeloma
     Dates: start: 2015, end: 202012
  7. CYCLOPHOSPHAMIDE [Suspect]
     Active Substance: CYCLOPHOSPHAMIDE
     Indication: Plasma cell myeloma
     Dates: start: 2015
  8. ISATUXIMAB [Suspect]
     Active Substance: ISATUXIMAB
     Indication: Plasma cell myeloma
     Dates: start: 2024
  9. TECLISTAMAB [Suspect]
     Active Substance: TECLISTAMAB
     Indication: Plasma cell myeloma
     Dates: start: 201501
  10. TECLISTAMAB [Suspect]
     Active Substance: TECLISTAMAB
     Dates: start: 202501
  11. POMALIDOMIDE [Suspect]
     Active Substance: POMALIDOMIDE
     Indication: Plasma cell myeloma
     Dates: start: 2024
  12. EPOETIN BETA [Concomitant]
     Active Substance: ERYTHROPOIETIN
     Dosage: 30000 IU, WEEKLY
     Route: 065
  13. ACYCLOVIR [Concomitant]
     Active Substance: ACYCLOVIR
     Dosage: 400 MG, 2X/DAY
     Route: 065
  14. ACYCLOVIR [Concomitant]
     Active Substance: ACYCLOVIR
     Dosage: 400 MG, 1X/DAY
     Route: 065
  15. APIXABAN [Concomitant]
     Active Substance: APIXABAN
     Dosage: 5 MG, 2X/DAY  (FREQ:.0.5 PER DAY)
     Route: 065
  16. APIXABAN [Concomitant]
     Active Substance: APIXABAN
     Dosage: 5 MG, 1X/DAY
     Route: 065
  17. ATOVAQUONE [Concomitant]
     Active Substance: ATOVAQUONE
     Dosage: 750 MG, 2X/DAY (FREQ: 0.5 PER DAY)
     Route: 065
  18. ATOVAQUONE [Concomitant]
     Active Substance: ATOVAQUONE
     Dosage: 750 MG, 1X/DAY
     Route: 065
  19. BISOPROLOL [Concomitant]
     Active Substance: BISOPROLOL
     Dosage: 7.5 MG, 1X/DAY
     Route: 065
  20. FINASTERIDE [Concomitant]
     Active Substance: FINASTERIDE
     Dosage: 5 MG, 1X/DAY
     Route: 065
  21. TAMSULOSIN [Concomitant]
     Active Substance: TAMSULOSIN
     Route: 065
  22. ZOPICLONE [Concomitant]
     Active Substance: ZOPICLONE
     Dosage: 3.75 MG, 1X/DAY (3.75 MG AT NIGHT)
     Route: 065
  23. DOCUSATE [Concomitant]
     Active Substance: DOCUSATE
     Dosage: 200 MG, 2X/DAY  (FRQUENCY: 0.5 PER DAY)
  24. DOCUSATE [Concomitant]
     Active Substance: DOCUSATE
     Dosage: 200 MG, 1X/DAY
     Route: 065
  25. BISACODYL [Concomitant]
     Active Substance: BISACODYL
     Dosage: 5 MG, 1X/DAY (5MG AT NIGHT)
     Route: 065

REACTIONS (2)
  - IVth nerve paralysis [Unknown]
  - Off label use [Unknown]

NARRATIVE: CASE EVENT DATE: 20201201
